FAERS Safety Report 7090115-4 (Version None)
Quarter: 2010Q4

REPORT INFORMATION
  Report Type: 
  Country: None (occurrence: None)
  Receive Date: 20101105
  Receipt Date: 20101105
  Transmission Date: 20110411
  Serious: Yes (Hospitalization, Other)
  Sender: FDA-Public Use
  Company Number: None

PATIENT
  Age: 20 Year
  Sex: Female
  Weight: 74.8435 kg

DRUGS (2)
  1. MIRENA [Suspect]
     Indication: CONTRACEPTION
     Dosage: ONCE EVERY 5 YEARS
     Dates: start: 20100101
  2. MIRENA [Suspect]
     Indication: MENSTRUAL CYCLE MANAGEMENT
     Dosage: ONCE EVERY 5 YEARS
     Dates: start: 20100101

REACTIONS (5)
  - ABDOMINAL PAIN [None]
  - NAUSEA [None]
  - PELVIC INFLAMMATORY DISEASE [None]
  - SWELLING [None]
  - WEIGHT INCREASED [None]
